FAERS Safety Report 6146565-3 (Version None)
Quarter: 2009Q2

REPORT INFORMATION
  Report Type: 
  Country: None (occurrence: None)
  Receive Date: 20090407
  Receipt Date: 20090326
  Transmission Date: 20091009
  Serious: Yes (Life-Threatening, Hospitalization, Other)
  Sender: FDA-Public Use
  Company Number: JP-MERCK-0902USA00385

PATIENT
  Age: 85 Year
  Sex: Female
  Weight: 35 kg

DRUGS (5)
  1. PEPCID RPD [Suspect]
     Indication: GASTRITIS
     Route: 048
     Dates: start: 20060329, end: 20060418
  2. AVELOX [Suspect]
     Indication: CELLULITIS
     Route: 048
     Dates: start: 20060412, end: 20060418
  3. SEPAMIT R [Concomitant]
     Route: 065
  4. THIAMYLAL SODIUM [Concomitant]
     Route: 051
     Dates: start: 20060328, end: 20060328
  5. MUSCULAX [Concomitant]
     Route: 051
     Dates: start: 20060328, end: 20060328

REACTIONS (3)
  - CELLULITIS [None]
  - CEREBRAL HAEMORRHAGE [None]
  - ELECTROCARDIOGRAM QT PROLONGED [None]
